FAERS Safety Report 7343711-0 (Version None)
Quarter: 2011Q1

REPORT INFORMATION
  Report Type: 
  Country: None (occurrence: None)
  Receive Date: 20110310
  Receipt Date: 20101115
  Transmission Date: 20110831
  Serious: No
  Sender: FDA-Public Use
  Company Number: A0892532A

PATIENT
  Age: 70 Year
  Sex: Male

DRUGS (3)
  1. NICORETTE [Suspect]
  2. NICORETTE (MINT) [Suspect]
  3. NICORETTE (MINT) [Suspect]

REACTIONS (5)
  - CHEILITIS [None]
  - DRUG ADMINISTRATION ERROR [None]
  - GINGIVAL PAIN [None]
  - BURNING SENSATION [None]
  - GINGIVAL DISORDER [None]
